FAERS Safety Report 14490899 (Version 1)
Quarter: 2018Q1

REPORT INFORMATION
  Report Type: Spontaneous
  Country: US (occurrence: US)
  Receive Date: 20180206
  Receipt Date: 20180206
  Transmission Date: 20180509
  Serious: No
  Sender: FDA-Public Use
  Company Number: US-PFIZER INC-2018046420

PATIENT
  Age: 66 Year
  Sex: Female

DRUGS (12)
  1. ASPIRIN. [Concomitant]
     Active Substance: ASPIRIN
     Dosage: 81 MG, UNK
  2. SIMVASTATIN. [Concomitant]
     Active Substance: SIMVASTATIN
     Dosage: 20 MG, UNK
  3. POTASSIUM [Concomitant]
     Active Substance: POTASSIUM
     Dosage: 99 MG, UNK
  4. ATENOLOL. [Concomitant]
     Active Substance: ATENOLOL
     Dosage: 100 MG, UNK
  5. MIRALAX [Concomitant]
     Active Substance: POLYETHYLENE GLYCOL 3350
     Dosage: UNK
  6. GABAPENTIN. [Concomitant]
     Active Substance: GABAPENTIN
     Dosage: 600 MG, UNK
  7. MELOXICAM. [Concomitant]
     Active Substance: MELOXICAM
     Dosage: 15 MG, UNK
  8. STOOL SOFTENER (DOCUSATE) [Concomitant]
     Active Substance: DOCUSATE
     Dosage: 250 MG, UNK
  9. CALCIUM [Concomitant]
     Active Substance: CALCIUM
     Dosage: 600 MG, UNK
  10. IRON [Concomitant]
     Active Substance: IRON
     Dosage: 65 MG, UNK (325)
  11. IBRANCE [Suspect]
     Active Substance: PALBOCICLIB
     Indication: AGRANULOCYTOSIS
     Dosage: 75 MG, UNK
  12. PREDNISOLONE. [Concomitant]
     Active Substance: PREDNISOLONE
     Dosage: UNK (SOL 6.7 (5 B))

REACTIONS (2)
  - Neoplasm progression [Unknown]
  - Product use in unapproved indication [Unknown]
